FAERS Safety Report 16700803 (Version 1)
Quarter: 2019Q3

REPORT INFORMATION
  Report Type: Report from Study
  Country: None (occurrence: BE)
  Receive Date: 20190814
  Receipt Date: 20190814
  Transmission Date: 20191004
  Serious: Yes (Hospitalization)
  Sender: FDA-Public Use
  Company Number: BE-ABBVIE-19K-013-2876432-00

PATIENT
  Sex: Male

DRUGS (4)
  1. DUODOPA [Suspect]
     Active Substance: CARBIDOPA\LEVODOPA
     Dosage: DOSES CONTINUOUSLY MONITORED AND ADAPTED
     Route: 050
     Dates: start: 20171130, end: 20181211
  2. DUODOPA [Suspect]
     Active Substance: CARBIDOPA\LEVODOPA
     Indication: PARKINSON^S DISEASE
     Dosage: MD=7.5ML, CD=2ML/HR DURING 16HRS, ED=1ML
     Route: 050
     Dates: start: 20171030, end: 20171130
  3. PROLOPA 125 DISP [Concomitant]
     Indication: PRODUCT USED FOR UNKNOWN INDICATION
     Dosage: FORM STRENGTH: 100MG/25MG; ON ARRIVAL OF HOME NURSES
  4. DUODOPA [Suspect]
     Active Substance: CARBIDOPA\LEVODOPA
     Dosage: MD=8ML, CD=3.2ML/HR DURING 16HRS, ED=1.6ML
     Route: 050
     Dates: start: 20181211

REACTIONS (3)
  - Embedded device [Unknown]
  - Pulmonary embolism [Unknown]
  - Device dislocation [Recovered/Resolved]
